FAERS Safety Report 5476274-5 (Version None)
Quarter: 2007Q4

REPORT INFORMATION
  Report Type: 
  Country: None (occurrence: None)
  Receive Date: 20071003
  Receipt Date: 20070921
  Transmission Date: 20080405
  Serious: Yes (Other)
  Sender: FDA-Public Use
  Company Number: GB-PFIZER INC-2007079996

PATIENT
  Sex: Female

DRUGS (4)
  1. SERTRALINE HCL [Suspect]
  2. ESCITALOPRAM OXALATE [Suspect]
  3. FLUOXETINE [Suspect]
  4. PAROXETINE HCL [Suspect]
     Route: 048

REACTIONS (14)
  - AGGRESSION [None]
  - ANXIETY [None]
  - DIZZINESS [None]
  - DRUG WITHDRAWAL SYNDROME [None]
  - EYE DISORDER [None]
  - HEADACHE [None]
  - INTENTIONAL OVERDOSE [None]
  - IRRITABILITY [None]
  - MIGRAINE [None]
  - MOOD ALTERED [None]
  - NAUSEA [None]
  - SELF-INJURIOUS IDEATION [None]
  - SUICIDAL IDEATION [None]
  - TEARFULNESS [None]
